FAERS Safety Report 16044990 (Version 3)
Quarter: 2019Q2

REPORT INFORMATION
  Report Type: Spontaneous
  Country: US (occurrence: US)
  Receive Date: 20190307
  Receipt Date: 20190404
  Transmission Date: 20190711
  Serious: Yes (Hospitalization)
  Sender: FDA-Public Use
  Company Number: US-BIOGEN-2018BI00652418

PATIENT
  Age: 35 Year
  Sex: Female

DRUGS (1)
  1. PLEGRIDY [Suspect]
     Active Substance: PEGINTERFERON BETA-1A
     Indication: MULTIPLE SCLEROSIS
     Route: 050
     Dates: start: 20180726, end: 20181220

REACTIONS (21)
  - Alopecia [Not Recovered/Not Resolved]
  - Skin discolouration [Unknown]
  - Anxiety [Not Recovered/Not Resolved]
  - Dry skin [Unknown]
  - Burning sensation [Unknown]
  - Migraine [Unknown]
  - Drug intolerance [Unknown]
  - Chest pain [Unknown]
  - Stress [Unknown]
  - Heart rate increased [Not Recovered/Not Resolved]
  - Depression [Not Recovered/Not Resolved]
  - Hypersensitivity [Unknown]
  - Skin irritation [Unknown]
  - Influenza [Unknown]
  - Hypoaesthesia [Not Recovered/Not Resolved]
  - Dizziness [Not Recovered/Not Resolved]
  - Adrenal disorder [Unknown]
  - Memory impairment [Unknown]
  - Injection site bruising [Not Recovered/Not Resolved]
  - Ulcer [Unknown]
  - Skin burning sensation [Unknown]

NARRATIVE: CASE EVENT DATE: 20180825
